FAERS Safety Report 19402275 (Version 1)
Quarter: 2021Q2

REPORT INFORMATION
  Report Type: Spontaneous
  Country: US (occurrence: US)
  Receive Date: 20210610
  Receipt Date: 20210610
  Transmission Date: 20210717
  Serious: No
  Sender: FDA-Public Use
  Company Number: US-COLLEGIUM PHARMACEUTICAL, INC.-2020CGM00423

PATIENT
  Age: 56 Year
  Sex: Female
  Weight: 81.63 kg

DRUGS (3)
  1. UNSPECIFIED BREAKTHROUGH MEDICATION [Concomitant]
  2. XTAMPZA ER [Suspect]
     Active Substance: OXYCODONE
     Indication: BACK PAIN
  3. XTAMPZA ER [Suspect]
     Active Substance: OXYCODONE
     Indication: ARTHRALGIA
     Dosage: 36 MG, 2X/DAY
     Route: 048
     Dates: start: 202010

REACTIONS (3)
  - Constipation [Recovering/Resolving]
  - Abdominal pain upper [Recovered/Resolved]
  - Therapeutic product effect incomplete [Not Recovered/Not Resolved]

NARRATIVE: CASE EVENT DATE: 202010
